FAERS Safety Report 5674919-8 (Version None)
Quarter: 2008Q1

REPORT INFORMATION
  Report Type: 
  Country: None (occurrence: None)
  Receive Date: 20080320
  Receipt Date: 20080314
  Transmission Date: 20080703
  Serious: Yes (Hospitalization)
  Sender: FDA-Public Use
  Company Number: US-ELI_LILLY_AND_COMPANY-US200801003253

PATIENT
  Age: 64 Year
  Sex: Female
  Weight: 130.61 kg

DRUGS (11)
  1. BYETTA [Suspect]
     Indication: OBESITY
     Dosage: 5 UG, UNKNOWN
     Dates: start: 20070510, end: 20071016
  2. AMBIEN [Concomitant]
     Indication: INSOMNIA
     Dosage: 10 MG, UNKNOWN
  3. GLIPIZIDE [Concomitant]
     Indication: DIABETES MELLITUS
     Dosage: 5 MG, UNKNOWN
     Route: 048
  4. PROTONIX [Concomitant]
     Indication: GASTROOESOPHAGEAL REFLUX DISEASE
     Dosage: 40 MG, UNKNOWN
  5. NEURONTIN [Concomitant]
     Indication: PAIN
     Dosage: 300 MG, 4/D
  6. EFFEXOR [Concomitant]
     Dosage: 150 MG, DAILY (1/D)
  7. TOPROL-XL [Concomitant]
     Indication: BLOOD PRESSURE
     Dosage: 50 MG, UNKNOWN
  8. METFORMIN HCL [Concomitant]
     Indication: DIABETES MELLITUS
     Dosage: 1000 MG, 2/D
  9. VYTORIN [Concomitant]
     Indication: LIPIDS
     Dosage: UNK, DAILY (1/D)
     Route: 048
  10. PLAVIX [Concomitant]
     Indication: CORONARY ARTERY DISEASE
     Dosage: 75 MG, UNKNOWN
  11. BENICAR [Concomitant]
     Indication: DIABETES MELLITUS
     Dosage: 40 MG, UNKNOWN

REACTIONS (2)
  - PANCREATITIS ACUTE [None]
  - WEIGHT DECREASED [None]
